FAERS Safety Report 7734282-5 (Version None)
Quarter: 2011Q3

REPORT INFORMATION
  Report Type: 
  Country: None (occurrence: None)
  Receive Date: 20110907
  Receipt Date: 20110829
  Transmission Date: 20111222
  Serious: Yes (Other)
  Sender: FDA-Public Use
  Company Number: TW-ABBOTT-11P-153-0850475-00

PATIENT
  Age: 41 Year
  Sex: Female

DRUGS (2)
  1. DEPAKENE [Suspect]
     Indication: BIPOLAR I DISORDER
     Dosage: DAILY
     Route: 048
  2. QUETIAPINE [Concomitant]
     Indication: PRODUCT USED FOR UNKNOWN INDICATION

REACTIONS (4)
  - ALTERED STATE OF CONSCIOUSNESS [None]
  - DELIRIUM [None]
  - HYPERAMMONAEMIA [None]
  - IRRITABILITY [None]
